FAERS Safety Report 8533269 (Version 3)
Quarter: 2012Q4

REPORT INFORMATION
  Report Type: 
  Country: US (occurrence: US)
  Receive Date: 20120427
  Receipt Date: 20120920
  Transmission Date: 20130627
  Serious: Yes (Hospitalization)
  Sender: FDA-Public Use
  Company Number: US-BAYER-2012-039698

PATIENT
  Age: 46 Year
  Sex: Female
  Weight: 49.89 kg

DRUGS (38)
  1. YAZ [Suspect]
     Indication: PREMENSTRUAL SYNDROME
     Dosage: UNK
     Dates: start: 20100324, end: 20100429
  2. YAZ [Suspect]
     Indication: PREMENSTRUAL SYNDROME
  3. ZOLOFT [Concomitant]
     Dosage: 100 mg, UNK
  4. TOPAMAX [Concomitant]
     Dosage: 50 mg in the morning
  5. TOPAMAX [Concomitant]
     Dosage: 100 mg, evening
  6. TRAZODONE [Concomitant]
     Indication: INSOMNIA
     Dosage: 150 mg, nightly
  7. TRAZODONE [Concomitant]
     Indication: INSOMNIA
     Dosage: UNK
     Dates: start: 20090422, end: 20100228
  8. TRAZODONE [Concomitant]
     Indication: INSOMNIA
     Dosage: UNK
     Dates: start: 20100402, end: 20100720
  9. KLONOPIN [Concomitant]
     Dosage: 1 mg, nightly
  10. NASACORT [Concomitant]
     Dosage: nightly
  11. TRAMADOL [Concomitant]
     Indication: MIGRAINE
     Dosage: UNK UNK, PRN
  12. BUTALBITAL [Concomitant]
     Indication: MIGRAINE
     Dosage: UNK UNK, PRN
  13. TOPIRAMATE [Concomitant]
     Dosage: UNK
     Dates: start: 20090426, end: 20100602
  14. FLUTICASONE PROPIONATE [Concomitant]
     Dosage: UNK
     Dates: start: 20090312, end: 20090702
  15. FLUTICASONE PROPIONATE [Concomitant]
     Dosage: UNK
     Dates: start: 20090902, end: 20100131
  16. SERTRALINE [Concomitant]
     Dosage: UNK
     Dates: start: 20090317, end: 20100131
  17. SERTRALINE [Concomitant]
     Dosage: UNK
     Dates: start: 20100307, end: 20100602
  18. CLONAZEPAM [Concomitant]
     Indication: ANXIETY
     Dosage: UNK
     Dates: start: 20090327, end: 20100702
  19. AZITHROMYCIN [Concomitant]
     Dosage: UNK
     Dates: start: 20091201
  20. AZITHROMYCIN [Concomitant]
     Dosage: UNK
     Dates: start: 20100417
  21. AZITHROMYCIN [Concomitant]
     Dosage: UNK
     Dates: start: 20100426
  22. SUMATRIPTAN [Concomitant]
     Dosage: UNK
     Dates: start: 20090421
  23. SUMATRIPTAN [Concomitant]
     Dosage: UNK
     Dates: start: 20091201
  24. SUMATRIPTAN [Concomitant]
     Dosage: UNK
     Dates: start: 20100225
  25. SUMATRIPTAN [Concomitant]
     Dosage: UNK
     Dates: start: 20100418
  26. BUTALBITAL, ACETAMINOPHEN + CAFFEINE [Concomitant]
     Dosage: UNK
     Dates: start: 20090312, end: 20090603
  27. BUTALBITAL, ACETAMINOPHEN + CAFFEINE [Concomitant]
     Dosage: UNK
     Dates: start: 20091201, end: 20100720
  28. LYBREL [Concomitant]
     Dosage: UNK
     Dates: start: 20100225
  29. METOPROLOL [Concomitant]
     Dosage: UNK
     Dates: start: 20100225
  30. COMPRO [Concomitant]
     Dosage: 25 mg, UNK
     Dates: start: 20091201
  31. COMPRO [Concomitant]
     Dosage: 25 mg, UNK
     Dates: start: 20100225
  32. MINOCYCLIN [Concomitant]
     Dosage: UNK
     Dates: start: 20090902
  33. MINOCYCLIN [Concomitant]
     Dosage: UNK
     Dates: start: 20100318
  34. SKELAXIN [Concomitant]
     Dosage: 800 mg, UNK
     Dates: start: 20100414
  35. VIVELLE-DOT [Concomitant]
     Dosage: UNK
     Dates: start: 20100424
  36. LEXAPRO [Concomitant]
     Indication: ANXIETY
     Dosage: UNK
     Dates: start: 200502
  37. PROPXYPHEN-APAP [Concomitant]
     Dosage: UNK
     Dates: start: 20100201
  38. PROPXYPHEN-APAP [Concomitant]
     Dosage: UNK
     Dates: start: 20100414

REACTIONS (6)
  - Pulmonary embolism [None]
  - Injury [None]
  - Deep vein thrombosis [None]
  - Pain [None]
  - Stress [None]
  - Anxiety [None]
